FAERS Safety Report 9020517 (Version 1)
Quarter: 2013Q1

REPORT INFORMATION
  Report Type: Spontaneous
  Country: US (occurrence: US)
  Receive Date: 20130119
  Receipt Date: 20130119
  Transmission Date: 20140127
  Serious: No
  Sender: FDA-Public Use
  Company Number: US-ALLERGAN-1207827US

PATIENT
  Sex: Female

DRUGS (4)
  1. BOTOX? [Suspect]
     Indication: SKIN WRINKLING
     Dosage: 70 UNITS, SINGLE
  2. BOTOX? [Suspect]
     Indication: SKIN WRINKLING
  3. BOTOX? [Suspect]
     Indication: SKIN WRINKLING
  4. BOTOX? [Suspect]
     Indication: SKIN WRINKLING

REACTIONS (1)
  - Dyspnoea [Unknown]
